FAERS Safety Report 6329551-X (Version None)
Quarter: 2009Q3

REPORT INFORMATION
  Report Type: 
  Country: None (occurrence: None)
  Receive Date: 20090826
  Receipt Date: 20090820
  Transmission Date: 20100115
  Serious: Yes (Hospitalization, Other)
  Sender: FDA-Public Use
  Company Number: US-ABBOTT-09P-163-0592404-00

PATIENT
  Sex: Male
  Weight: 86.26 kg

DRUGS (11)
  1. ADVICOR [Suspect]
     Indication: BLOOD CHOLESTEROL INCREASED
     Dates: start: 20070101, end: 20070101
  2. NIASPAN [Suspect]
     Indication: BLOOD CHOLESTEROL INCREASED
     Dates: start: 20070101, end: 20070101
  3. NIASPAN [Suspect]
     Dates: start: 20090801
  4. SIMCOR [Suspect]
     Indication: BLOOD CHOLESTEROL INCREASED
     Dates: start: 20090101, end: 20090101
  5. LIPITOR [Concomitant]
     Indication: BLOOD CHOLESTEROL INCREASED
  6. ASPIRIN [Concomitant]
     Indication: CARDIOVASCULAR EVENT PROPHYLAXIS
  7. LISINOPRIL [Concomitant]
     Indication: HYPERTENSION
  8. FISH OIL [Concomitant]
     Indication: ROUTINE HEALTH MAINTENANCE
  9. GARLIC [Concomitant]
     Indication: ROUTINE HEALTH MAINTENANCE
  10. COQ10 [Concomitant]
     Indication: ROUTINE HEALTH MAINTENANCE
  11. UNKNOWN STATIN [Concomitant]
     Indication: BLOOD CHOLESTEROL INCREASED
     Dates: start: 20080101, end: 20080101

REACTIONS (6)
  - ABDOMINAL DISCOMFORT [None]
  - BACK PAIN [None]
  - CEREBROVASCULAR ACCIDENT [None]
  - DRUG DOSE OMISSION [None]
  - HYPOAESTHESIA [None]
  - MYALGIA [None]
